FAERS Safety Report 6290620-4 (Version None)
Quarter: 2009Q3

REPORT INFORMATION
  Report Type: 
  Country: None (occurrence: None)
  Receive Date: 20090727
  Receipt Date: 20080812
  Transmission Date: 20100115
  Serious: Yes (Other)
  Sender: FDA-Public Use
  Company Number: OMPQ-PR-0808S-0586

PATIENT
  Age: 27 Year
  Sex: Female

DRUGS (1)
  1. OMNIPAQUE 300 [Suspect]
     Indication: DRUG USE FOR UNKNOWN INDICATION
     Dosage: 138 ML, SINGLE DOSE, I.V.
     Route: 042
     Dates: start: 20080805, end: 20080805

REACTIONS (1)
  - ANAPHYLACTOID REACTION [None]
